FAERS Safety Report 18772191 (Version 1)
Quarter: 2021Q1

REPORT INFORMATION
  Report Type: Spontaneous
  Country: US (occurrence: US)
  Receive Date: 20210121
  Receipt Date: 20210121
  Transmission Date: 20210419
  Serious: No
  Sender: FDA-Public Use
  Company Number: US-PERRIGO-20US002748

PATIENT
  Age: 55 Year
  Sex: Male
  Weight: 70.3 kg

DRUGS (2)
  1. NYSTATIN. [Suspect]
     Active Substance: NYSTATIN
     Indication: EXPOSURE VIA SKIN CONTACT
     Dosage: UNK, SINGLE
     Route: 061
     Dates: start: 20200216, end: 20200216
  2. NYSTATIN. [Suspect]
     Active Substance: NYSTATIN
     Indication: FUNGAL INFECTION
     Dosage: THIN LAYER, BID
     Route: 061
     Dates: start: 20200204

REACTIONS (1)
  - Exposure via skin contact [Recovered/Resolved]

NARRATIVE: CASE EVENT DATE: 20200216
